FAERS Safety Report 10869302 (Version 2)
Quarter: 2018Q1

REPORT INFORMATION
  Report Type: Spontaneous
  Country: US (occurrence: US)
  Receive Date: 20150226
  Receipt Date: 20180110
  Transmission Date: 20180508
  Serious: No
  Sender: FDA-Public Use
  Company Number: US-LUNDBECK-DKLU1108321

PATIENT
  Sex: Female

DRUGS (4)
  1. MIDODRINE [Suspect]
     Active Substance: MIDODRINE
     Indication: PRODUCT USED FOR UNKNOWN INDICATION
     Route: 065
  2. NORTHERA [Suspect]
     Active Substance: DROXIDOPA
     Indication: ORTHOSTATIC HYPOTENSION
  3. NORTHERA [Suspect]
     Active Substance: DROXIDOPA
     Indication: NEUROPATHY PERIPHERAL
  4. NORTHERA [Suspect]
     Active Substance: DROXIDOPA
     Indication: AUTONOMIC FAILURE SYNDROME
     Dosage: SCHEDULE B
     Route: 048
     Dates: start: 201412

REACTIONS (8)
  - Blood pressure increased [Unknown]
  - Eye swelling [Unknown]
  - Palpitations [Unknown]
  - Insomnia [Unknown]
  - Lacrimation increased [Unknown]
  - Anxiety [Unknown]
  - Head discomfort [Unknown]
  - Headache [Unknown]
